FAERS Safety Report 4901144-8 (Version None)
Quarter: 2006Q1

REPORT INFORMATION
  Report Type: 
  Country: None (occurrence: None)
  Receive Date: 20060201
  Receipt Date: 20060126
  Transmission Date: 20060701
  Serious: Yes (Life-Threatening)
  Sender: FDA-Public Use
  Company Number: MED-06002

PATIENT
  Age: 64 Year
  Sex: Female

DRUGS (2)
  1. BACTRIM DS [Suspect]
     Dates: start: 20050501
  2. PREDNISONE [Suspect]
     Indication: HYPERSENSITIVITY
     Dates: start: 20050501

REACTIONS (5)
  - DRUG HYPERSENSITIVITY [None]
  - POLLAKIURIA [None]
  - PROTEIN URINE [None]
  - RENAL FAILURE [None]
  - URINE ABNORMALITY [None]
